FAERS Safety Report 7740115-3 (Version None)
Quarter: 2011Q3

REPORT INFORMATION
  Report Type: 
  Country: None (occurrence: None)
  Receive Date: 20110909
  Receipt Date: 20110831
  Transmission Date: 20111222
  Serious: Yes (Other)
  Sender: FDA-Public Use
  Company Number: FR-ROCHE-800241

PATIENT
  Sex: Female

DRUGS (1)
  1. ACTEMRA [Suspect]
     Dosage: FREQUENCY: CYCLE
     Route: 042

REACTIONS (1)
  - UVEITIS [None]
